FAERS Safety Report 16284971 (Version 2)
Quarter: 2019Q2

REPORT INFORMATION
  Report Type: Report from Study
  Country: DE (occurrence: DE)
  Receive Date: 20190508
  Receipt Date: 20190617
  Transmission Date: 20190711
  Serious: No
  Sender: FDA-Public Use
  Company Number: DE-ROCHE-2239868

PATIENT
  Age: 32 Year
  Sex: Female

DRUGS (6)
  1. OCREVUS [Interacting]
     Active Substance: OCRELIZUMAB
     Route: 042
     Dates: start: 20181026
  2. FAMPYRA [Concomitant]
     Active Substance: DALFAMPRIDINE
     Dosage: AS REQUIRED
     Route: 065
  3. OCREVUS [Interacting]
     Active Substance: OCRELIZUMAB
     Route: 042
     Dates: start: 20190410
  4. DRONABINOL. [Concomitant]
     Active Substance: DRONABINOL
     Indication: PRODUCT USED FOR UNKNOWN INDICATION
     Route: 065
  5. OCREVUS [Suspect]
     Active Substance: OCRELIZUMAB
     Indication: RELAPSING-REMITTING MULTIPLE SCLEROSIS
     Route: 042
     Dates: start: 20181012
  6. PANTOZOL [Concomitant]
     Active Substance: PANTOPRAZOLE SODIUM
     Dosage: AS REQUIRED
     Route: 065

REACTIONS (10)
  - Nasopharyngitis [Recovered/Resolved]
  - Gastrointestinal infection [Recovered/Resolved]
  - Urinary tract infection [Not Recovered/Not Resolved]
  - Muscle spasticity [Not Recovered/Not Resolved]
  - Body temperature increased [Recovered/Resolved]
  - Nausea [Recovered/Resolved]
  - Fatigue [Recovered/Resolved]
  - Pain [Not Recovered/Not Resolved]
  - Asthenia [Recovered/Resolved]
  - Sensory disturbance [Not Recovered/Not Resolved]

NARRATIVE: CASE EVENT DATE: 20181012
